FAERS Safety Report 21871966 (Version 1)
Quarter: 2023Q1

REPORT INFORMATION
  Report Type: Spontaneous
  Country: US (occurrence: US)
  Receive Date: 20230117
  Receipt Date: 20230117
  Transmission Date: 20230418
  Serious: Yes (Other)
  Sender: FDA-Public Use
  Company Number: US-MYLANLABS-2022M1141625

PATIENT
  Age: 15 Year
  Sex: Female

DRUGS (5)
  1. LITHIUM [Interacting]
     Active Substance: LITHIUM
     Indication: Bipolar I disorder
     Dosage: 600 MILLIGRAM, QD
     Route: 065
  2. OLANZAPINE [Suspect]
     Active Substance: OLANZAPINE
     Indication: Bipolar I disorder
     Dosage: 30 MILLIGRAM, QD
     Route: 065
  3. RISPERIDONE [Interacting]
     Active Substance: RISPERIDONE
     Indication: Bipolar I disorder
     Dosage: 2 MILLIGRAM, QD, INITIAL DOSE
     Route: 048
  4. RISPERIDONE [Interacting]
     Active Substance: RISPERIDONE
     Dosage: 6 MILLIGRAM, QD
     Route: 048
  5. RISPERIDONE [Interacting]
     Active Substance: RISPERIDONE
     Dosage: DOSE REDUCED TO 0.5MG
     Route: 048

REACTIONS (5)
  - Parkinsonism [Recovered/Resolved]
  - Labelled drug-drug interaction medication error [Recovered/Resolved]
  - Antipsychotic drug level increased [Recovered/Resolved]
  - Weight increased [Unknown]
  - Akathisia [Unknown]
